FAERS Safety Report 7569976-8 (Version None)
Quarter: 2011Q2

REPORT INFORMATION
  Report Type: 
  Country: None (occurrence: None)
  Receive Date: 20110622
  Receipt Date: 20110622
  Transmission Date: 20111010
  Serious: Yes (Life-Threatening)
  Sender: FDA-Public Use
  Company Number: None

PATIENT
  Age: 69 Year
  Sex: Male

DRUGS (2)
  1. PROPAFENONE HCL [Suspect]
     Indication: ATRIAL FIBRILLATION
     Dosage: 225 MG TID PO
     Route: 048
     Dates: start: 20060401, end: 20110531
  2. MIRTAZAPINE [Suspect]
     Indication: INSOMNIA
     Dosage: 50 MG QHS PO
     Route: 048
     Dates: start: 20110530, end: 20110531

REACTIONS (9)
  - ATRIAL FIBRILLATION [None]
  - BLOOD PRESSURE DECREASED [None]
  - SINUS BRADYCARDIA [None]
  - BUNDLE BRANCH BLOCK RIGHT [None]
  - ELECTROCARDIOGRAM QRS COMPLEX PROLONGED [None]
  - ELECTROCARDIOGRAM QT PROLONGED [None]
  - ELECTROCARDIOGRAM ST-T CHANGE [None]
  - INITIAL INSOMNIA [None]
  - CONVULSION [None]
